FAERS Safety Report 6180222-2 (Version None)
Quarter: 2009Q2

REPORT INFORMATION
  Report Type: 
  Country: None (occurrence: None)
  Receive Date: 20090504
  Receipt Date: 20090217
  Transmission Date: 20091009
  Serious: Yes (Hospitalization)
  Sender: FDA-Public Use
  Company Number: KV200800520

PATIENT
  Age: 59 Year
  Sex: Male

DRUGS (4)
  1. MORPHINE SULFATE [Suspect]
     Indication: PALLIATIVE CARE
     Dosage: 30 T0 60 MG, PM, ORAL
     Route: 048
     Dates: start: 20080828, end: 20080901
  2. SEVERAL OTHER MEDICATIIONS [Concomitant]
  3. ATIVAN [Concomitant]
  4. OXYGEN (OXYGEN) [Concomitant]

REACTIONS (10)
  - COMA [None]
  - CONFUSIONAL STATE [None]
  - CYANOSIS [None]
  - DISORIENTATION [None]
  - DYSPNOEA [None]
  - LIVEDO RETICULARIS [None]
  - MEMORY IMPAIRMENT [None]
  - PRODUCT QUALITY ISSUE [None]
  - RESPIRATORY RATE DECREASED [None]
  - TREMOR [None]
